FAERS Safety Report 4871050-6 (Version None)
Quarter: 2005Q4

REPORT INFORMATION
  Report Type: 
  Country: None (occurrence: None)
  Receive Date: 20051229
  Receipt Date: 20051222
  Transmission Date: 20060501
  Serious: Yes (Hospitalization)
  Sender: FDA-Public Use
  Company Number: 2005-135127-NL

PATIENT
  Age: 37 Year
  Sex: Male

DRUGS (6)
  1. MIRTAZAPINE [Suspect]
     Indication: DEPRESSION
     Dosage: 15 MG/30 MG/45 MG ORAL
     Route: 048
     Dates: start: 20050914, end: 20050920
  2. MIRTAZAPINE [Suspect]
     Indication: DEPRESSION
     Dosage: 15 MG/30 MG/45 MG ORAL
     Route: 048
     Dates: start: 20050921, end: 20051025
  3. MIRTAZAPINE [Suspect]
     Indication: DEPRESSION
     Dosage: 15 MG/30 MG/45 MG ORAL
     Route: 048
     Dates: start: 20051026, end: 20051124
  4. ZOPICLONE [Concomitant]
  5. TRIAZOLAM [Concomitant]
  6. EPERISONE HYDROCHLORIDE [Concomitant]

REACTIONS (3)
  - HEAD INJURY [None]
  - MEMORY IMPAIRMENT [None]
  - ROAD TRAFFIC ACCIDENT [None]
